FAERS Safety Report 8396207-1 (Version None)
Quarter: 2012Q2

REPORT INFORMATION
  Report Type: 
  Country: None (occurrence: None)
  Receive Date: 20120530
  Receipt Date: 20120525
  Transmission Date: 20120825
  Serious: Yes (Hospitalization)
  Sender: FDA-Public Use
  Company Number: FR-GLAXOSMITHKLINE-B0803981A

PATIENT
  Sex: Male

DRUGS (13)
  1. ATOVAQUONE [Suspect]
     Indication: PRODUCT USED FOR UNKNOWN INDICATION
     Route: 048
     Dates: start: 20110103, end: 20110101
  2. MYAMBUTOL [Concomitant]
     Indication: TUBERCULOSIS
     Route: 048
     Dates: start: 20101203
  3. MALOCIDE [Concomitant]
  4. CLOBAZAM [Suspect]
     Indication: PRODUCT USED FOR UNKNOWN INDICATION
     Route: 048
     Dates: end: 20110101
  5. TRIDESONIT [Concomitant]
  6. NICOBION [Concomitant]
     Indication: PRODUCT USED FOR UNKNOWN INDICATION
     Dates: end: 20110101
  7. RIMIFON [Concomitant]
     Indication: TUBERCULOSIS
     Route: 048
     Dates: start: 20101203
  8. FOLINORAL [Concomitant]
  9. BACTRIM [Suspect]
     Indication: PRODUCT USED FOR UNKNOWN INDICATION
     Route: 048
     Dates: start: 20101203, end: 20110103
  10. DEPAKENE [Suspect]
     Indication: EPILEPSY
     Route: 048
     Dates: start: 20101230, end: 20110103
  11. LOVENOX [Suspect]
     Indication: PRODUCT USED FOR UNKNOWN INDICATION
     Route: 058
     Dates: end: 20110101
  12. MOXIFLOXACIN HCL [Concomitant]
     Indication: TUBERCULOSIS
     Route: 048
     Dates: start: 20101203
  13. RIFATER [Concomitant]
     Indication: TUBERCULOSIS
     Route: 065
     Dates: start: 20101123, end: 20101130

REACTIONS (2)
  - GENERALISED ERYTHEMA [None]
  - CONDITION AGGRAVATED [None]
